FAERS Safety Report 24642430 (Version 1)
Quarter: 2024Q4

REPORT INFORMATION
  Report Type: Spontaneous
  Country: US (occurrence: None)
  Receive Date: 20241119
  Receipt Date: 20241119
  Transmission Date: 20250114
  Serious: Yes (Life-Threatening)
  Sender: Public
  Company Number: None

PATIENT
  Age: 47 Year
  Sex: Female
  Weight: 94.5 kg

DRUGS (4)
  1. PAXLOVID [Suspect]
     Active Substance: NIRMATRELVIR\RITONAVIR
     Indication: COVID-19
     Dosage: OTHER QUANTITY : 30 TABLET(S);?FREQUENCY : TWICE A DAY;?
     Route: 048
     Dates: start: 20221127, end: 20221129
  2. AMBIEN [Suspect]
     Active Substance: ZOLPIDEM TARTRATE
  3. BUSPAR [Suspect]
     Active Substance: BUSPIRONE HYDROCHLORIDE
  4. CARDIZEM [Suspect]
     Active Substance: DILTIAZEM HYDROCHLORIDE

REACTIONS (9)
  - Unresponsive to stimuli [None]
  - Vomiting [None]
  - Encephalopathy [None]
  - Metabolic acidosis [None]
  - Dysgeusia [None]
  - Muscle spasms [None]
  - Agitation [None]
  - Restlessness [None]
  - Drug interaction [None]

NARRATIVE: CASE EVENT DATE: 20221130
